FAERS Safety Report 8584796-3 (Version None)
Quarter: 2012Q2

REPORT INFORMATION
  Report Type: 
  Country: None (occurrence: None)
  Receive Date: 20120423
  Receipt Date: 20091104
  Transmission Date: 20120825
  Serious: Yes (Other)
  Sender: FDA-Public Use
  Company Number: PHEH2009US14530

PATIENT
  Age: 69 Year
  Sex: Male
  Weight: 109 kg

DRUGS (1)
  1. EXJADE [Suspect]
     Indication: IRON OVERLOAD
     Dosage: 2000 MG, QD, ORAL
     Route: 048
     Dates: start: 20091007, end: 20091008

REACTIONS (3)
  - CHOLELITHIASIS [None]
  - NON-CARDIAC CHEST PAIN [None]
  - GALLBLADDER OPERATION [None]
